FAERS Safety Report 11138393 (Version 2)
Quarter: 2015Q2

REPORT INFORMATION
  Report Type: Spontaneous
  Country: BR (occurrence: BR)
  Receive Date: 20150526
  Receipt Date: 20150610
  Transmission Date: 20150821
  Serious: Yes (Other)
  Sender: FDA-Public Use
  Company Number: PHHY2015BR063561

PATIENT
  Age: 19 Year

DRUGS (3)
  1. DNASE [Suspect]
     Active Substance: DEOXYRIBONUCLIEC ACID
     Indication: PRODUCT USED FOR UNKNOWN INDICATION
     Route: 055
  2. TOBI [Suspect]
     Active Substance: TOBRAMYCIN
     Indication: PSEUDOMONAS INFECTION
     Route: 065
  3. TOBI [Suspect]
     Active Substance: TOBRAMYCIN
     Indication: CYSTIC FIBROSIS

REACTIONS (7)
  - Pulmonary haemorrhage [Unknown]
  - Pseudomonas infection [Unknown]
  - Haemoptysis [Unknown]
  - Infective exacerbation of bronchiectasis [Unknown]
  - Pulmonary function test decreased [Unknown]
  - Angiopathy [Unknown]
  - Bacterial disease carrier [Unknown]

NARRATIVE: CASE EVENT DATE: 2012
